FAERS Safety Report 8869394 (Version 1)
Quarter: 2012Q4

REPORT INFORMATION
  Report Type: 
  Country: US (occurrence: US)
  Receive Date: 20121023
  Receipt Date: 20121023
  Transmission Date: 20130627
  Serious: Yes (Other)
  Sender: FDA-Public Use
  Company Number: US-AMGEN-USASP2012050312

PATIENT
  Age: 60 Year
  Sex: Female
  Weight: 72.56 kg

DRUGS (6)
  1. ENBREL [Suspect]
     Indication: PSORIATIC ARTHROPATHY
     Dosage: 50 mg, qwk
     Route: 058
  2. DILTIAZEM [Concomitant]
     Dosage: 180 mg, qd
     Route: 048
  3. METFORMIN [Concomitant]
     Dosage: 1000 mg, UNK
     Route: 048
  4. LATANOPROST [Concomitant]
     Dosage: 0.005 %, UNK
     Route: 047
  5. GLUCOSAMINE CHONDROITIN COMPLEX    /06278301/ [Concomitant]
     Route: 048
  6. FISH OIL [Concomitant]
     Route: 048

REACTIONS (1)
  - Rash erythematous [Unknown]
